FAERS Safety Report 10641246 (Version 1)
Quarter: 2014Q4

REPORT INFORMATION
  Report Type: Spontaneous
  Country: BE (occurrence: BE)
  Receive Date: 20141209
  Receipt Date: 20141209
  Transmission Date: 20150529
  Serious: Yes (Other)
  Sender: FDA-Public Use
  Company Number: BE-PFIZER INC-2014331793

PATIENT
  Age: 57 Year
  Sex: Male
  Weight: 64 kg

DRUGS (1)
  1. TERRAMYCINE [Suspect]
     Active Substance: OXYTETRACYCLINE
     Indication: EYE IRRITATION
     Dosage: UNK, 1X/DAY
     Route: 047
     Dates: start: 20141106, end: 20141106

REACTIONS (1)
  - Retinal injury [Unknown]

NARRATIVE: CASE EVENT DATE: 20141106
